FAERS Safety Report 15594398 (Version 1)
Quarter: 2018Q4

REPORT INFORMATION
  Report Type: Spontaneous
  Country: US (occurrence: US)
  Receive Date: 20181106
  Receipt Date: 20181106
  Transmission Date: 20190205
  Serious: Yes (Hospitalization)
  Sender: FDA-Public Use
  Company Number: US-GE HEALTHCARE LIFE SCIENCES-2018CSU004425

PATIENT
  Age: 7 Year
  Sex: Male
  Weight: 57 kg

DRUGS (1)
  1. OMNIPAQUE [Suspect]
     Active Substance: IOHEXOL
     Indication: APPENDICITIS
     Dosage: UNK, SINGLE
     Route: 042
     Dates: start: 20181027, end: 20181027

REACTIONS (2)
  - Extravasation [Recovering/Resolving]
  - Peripheral swelling [Recovering/Resolving]

NARRATIVE: CASE EVENT DATE: 20181027
